FAERS Safety Report 19515637 (Version 1)
Quarter: 2021Q3

REPORT INFORMATION
  Report Type: Spontaneous
  Country: DE (occurrence: CN)
  Receive Date: 20210709
  Receipt Date: 20210709
  Transmission Date: 20211014
  Serious: Yes (Other)
  Sender: FDA-Public Use
  Company Number: CN-ELI_LILLY_AND_COMPANY-CN202107003941

PATIENT
  Age: 65 Year
  Sex: Male
  Weight: 44 kg

DRUGS (4)
  1. 5?FU [FLUOROURACIL] [Suspect]
     Active Substance: FLUOROURACIL
     Dosage: 3.75 G, UNK
     Route: 041
     Dates: start: 20210621
  2. 5?FU [FLUOROURACIL] [Suspect]
     Active Substance: FLUOROURACIL
     Indication: COLON CANCER
     Dosage: 400 MG/M2, UNK
     Route: 065
     Dates: start: 20210621
  3. OXALIPLATIN. [Suspect]
     Active Substance: OXALIPLATIN
     Indication: COLON CANCER
     Dosage: 85 MG/M2, UNK
     Route: 041
     Dates: start: 20210621
  4. ERBITUX [Suspect]
     Active Substance: CETUXIMAB
     Indication: COLON CANCER
     Dosage: 500 MG/M2, UNK
     Route: 041
     Dates: start: 20210621, end: 20210621

REACTIONS (1)
  - White blood cell count decreased [Unknown]

NARRATIVE: CASE EVENT DATE: 20210624
